FAERS Safety Report 8171176-8 (Version None)
Quarter: 2012Q1

REPORT INFORMATION
  Report Type: 
  Country: None (occurrence: None)
  Receive Date: 20120228
  Receipt Date: 20111130
  Transmission Date: 20120608
  Serious: No
  Sender: FDA-Public Use
  Company Number: US-BRISTOL-MYERS SQUIBB COMPANY-16260291

PATIENT
  Age: 65 Year
  Sex: Female

DRUGS (2)
  1. ONGLYZA [Suspect]
  2. LIPITOR [Concomitant]

REACTIONS (1)
  - URINARY TRACT INFECTION [None]
